FAERS Safety Report 19354147 (Version 4)
Quarter: 2021Q3

REPORT INFORMATION
  Report Type: Report from Study
  Country: US (occurrence: US)
  Receive Date: 20210531
  Receipt Date: 20210731
  Transmission Date: 20211014
  Serious: Yes (Other)
  Sender: FDA-Public Use
  Company Number: NVSC2021US114634

PATIENT
  Sex: Female

DRUGS (2)
  1. PROMACTA [Suspect]
     Active Substance: ELTROMBOPAG OLAMINE
     Indication: PRODUCT USED FOR UNKNOWN INDICATION
     Dosage: UNK
     Route: 048
  2. CALCIUM [Concomitant]
     Active Substance: CALCIUM
     Indication: PRODUCT USED FOR UNKNOWN INDICATION
     Dosage: 50 MG
     Route: 065

REACTIONS (9)
  - Blood pressure abnormal [Unknown]
  - Labelled drug-food interaction medication error [Unknown]
  - Epistaxis [Unknown]
  - Dyslexia [Unknown]
  - Cataract [Unknown]
  - Thrombosis [Unknown]
  - Oral blood blister [Unknown]
  - Astigmatism [Unknown]
  - Platelet count increased [Unknown]
